FAERS Safety Report 19492576 (Version 1)
Quarter: 2021Q3

REPORT INFORMATION
  Report Type: Spontaneous
  Country: CN (occurrence: CN)
  Receive Date: 20210705
  Receipt Date: 20210705
  Transmission Date: 20211014
  Serious: Yes (Death, Hospitalization, Other)
  Sender: FDA-Public Use
  Company Number: CN-BION-009892

PATIENT
  Age: 42 Year
  Sex: Male

DRUGS (1)
  1. VALPROIC ACID. [Suspect]
     Active Substance: VALPROIC ACID
     Indication: EPILEPSY
     Dosage: INCREASED TO 1.6 G PER DAY

REACTIONS (2)
  - Acute hepatic failure [Fatal]
  - Thrombotic microangiopathy [Fatal]
